FAERS Safety Report 6239440-7 (Version None)
Quarter: 2009Q2

REPORT INFORMATION
  Report Type: 
  Country: None (occurrence: None)
  Receive Date: 20090618
  Receipt Date: 20090618
  Transmission Date: 20091009
  Serious: No
  Sender: FDA-Public Use
  Company Number: None

PATIENT
  Sex: Female
  Weight: 58.9676 kg

DRUGS (1)
  1. ZICAM COLD REMEDY/ NASAL GEL ZINCUM GLUCONICCUMZICAM  2X MATRIXX INITI [Suspect]
     Indication: NASOPHARYNGITIS
     Dosage: 1 PUMP 2 X DAY NASAL
     Route: 045
     Dates: start: 20090517, end: 20090522

REACTIONS (4)
  - ANOSMIA [None]
  - BURNING SENSATION [None]
  - MALAISE [None]
  - NASAL CONGESTION [None]
